FAERS Safety Report 4588605-9 (Version None)
Quarter: 2005Q1

REPORT INFORMATION
  Report Type: 
  Country: None (occurrence: None)
  Receive Date: 20050222
  Receipt Date: 20050210
  Transmission Date: 20050727
  Serious: Yes (Hospitalization)
  Sender: FDA-Public Use
  Company Number: FR-ROCHE-395090

PATIENT
  Age: 54 Year
  Sex: Female

DRUGS (4)
  1. CAPECITABINE [Suspect]
     Dosage: DAY 1 TO 14.
     Route: 048
     Dates: start: 20040409, end: 20040906
  2. VINORELBINE [Suspect]
     Dosage: DAY 1 AND DAY 8
     Route: 048
     Dates: start: 20040409, end: 20040903
  3. LOPERAMIDE HCL [Concomitant]
  4. OMEPRAZOLE [Concomitant]
     Route: 048
     Dates: start: 20040703

REACTIONS (16)
  - ALANINE AMINOTRANSFERASE INCREASED [None]
  - ANAEMIA [None]
  - ANOREXIA [None]
  - APHASIA [None]
  - ASPARTATE AMINOTRANSFERASE INCREASED [None]
  - ASTHENIA [None]
  - CEREBROVASCULAR ACCIDENT [None]
  - DEHYDRATION [None]
  - DIARRHOEA [None]
  - DYSARTHRIA [None]
  - FACIAL PALSY [None]
  - HEMIPLEGIA [None]
  - HYPOKALAEMIA [None]
  - MENINGIOMA [None]
  - METASTASES TO CENTRAL NERVOUS SYSTEM [None]
  - WHITE BLOOD CELL COUNT DECREASED [None]
